FAERS Safety Report 24997555 (Version 1)
Quarter: 2025Q1

REPORT INFORMATION
  Report Type: Spontaneous
  Country: GB (occurrence: GB)
  Receive Date: 20250222
  Receipt Date: 20250222
  Transmission Date: 20250409
  Serious: Yes (Other)
  Sender: AUROBINDO
  Company Number: GB-TEVA-VS-3293823

PATIENT
  Sex: Female

DRUGS (2)
  1. VALSARTAN [Suspect]
     Active Substance: VALSARTAN
     Indication: Product used for unknown indication
     Route: 065
  2. VALSARTAN [Suspect]
     Active Substance: VALSARTAN
     Route: 065

REACTIONS (5)
  - Visual impairment [Unknown]
  - Headache [Unknown]
  - Dyspnoea [Unknown]
  - Disturbance in attention [Unknown]
  - Drug hypersensitivity [Unknown]
